FAERS Safety Report 16898237 (Version 1)
Quarter: 2019Q4

REPORT INFORMATION
  Report Type: Spontaneous
  Country: US (occurrence: US)
  Receive Date: 20191009
  Receipt Date: 20191009
  Transmission Date: 20200122
  Serious: No
  Sender: FDA-Public Use
  Company Number: US-JNJFOC-20191000537

PATIENT
  Age: 69 Year
  Sex: Female

DRUGS (11)
  1. ZYRTEC [Suspect]
     Active Substance: CETIRIZINE HYDROCHLORIDE
     Indication: ANGIOEDEMA
     Route: 065
  2. VITAMINS WITH MINERALS [Concomitant]
     Active Substance: MINERALS\VITAMINS
     Indication: MACULAR DEGENERATION
     Route: 065
  3. PABRINEX                           /00636301/ [Concomitant]
     Indication: NUTRITIONAL SUPPLEMENTATION
     Route: 065
  4. EPIPEN [Concomitant]
     Active Substance: EPINEPHRINE
     Indication: ANGIOEDEMA
     Route: 065
  5. BENADRYL [Suspect]
     Active Substance: DIPHENHYDRAMINE HYDROCHLORIDE
     Indication: ANGIOEDEMA
     Route: 065
  6. LEVOTHYROXINE. [Concomitant]
     Active Substance: LEVOTHYROXINE
     Indication: HYPOTHYROIDISM
     Route: 065
     Dates: start: 1970
  7. VITAMIIN C [Concomitant]
     Active Substance: ASCORBIC ACID
     Indication: DENTAL CARE
     Route: 065
  8. VITAMIN K2 + D3 [Concomitant]
     Indication: DENTAL CARE
     Route: 065
  9. VITAMIN K2 + D3 [Concomitant]
     Indication: OSTEOPOROSIS PROPHYLAXIS
  10. PEPCID [Suspect]
     Active Substance: FAMOTIDINE
     Indication: ANGIOEDEMA
     Route: 065
  11. BENADRYL [Concomitant]
     Active Substance: DIPHENHYDRAMINE HYDROCHLORIDE
     Indication: PRODUCT USED FOR UNKNOWN INDICATION
     Dosage: 1 OR 2 - 25 MG LIQUID GELS AS NEEDED. USUALLY 2 ONCE A DAY, AND MORE IF NEEDED.
     Route: 048

REACTIONS (3)
  - Off label use [Unknown]
  - Therapeutic response unexpected [Unknown]
  - Product use in unapproved indication [Unknown]
